FAERS Safety Report 14091728 (Version 11)
Quarter: 2022Q2

REPORT INFORMATION
  Report Type: Spontaneous
  Country: US (occurrence: US)
  Receive Date: 20171016
  Receipt Date: 20220516
  Transmission Date: 20220720
  Serious: No
  Sender: FDA-Public Use
  Company Number: US-PFIZER INC-2017431151

PATIENT
  Age: 62 Year
  Sex: Female
  Weight: 70.3 kg

DRUGS (21)
  1. SOMAVERT [Suspect]
     Active Substance: PEGVISOMANT
     Indication: Acromegaly
     Dosage: 10 MG, DAILY
  2. SOMAVERT [Suspect]
     Active Substance: PEGVISOMANT
     Indication: Gigantism
     Dosage: 20 MG, DAILY
     Dates: start: 20171022
  3. SOMAVERT [Suspect]
     Active Substance: PEGVISOMANT
     Dosage: 20 MG, DAILY
     Route: 058
     Dates: start: 20171019
  4. LANREOTIDE [Concomitant]
     Active Substance: LANREOTIDE
     Dosage: 90 MG, UNK
  5. LANREOTIDE [Concomitant]
     Active Substance: LANREOTIDE
     Dosage: 120 MG, MONTHLY
     Route: 058
  6. PROAIR HFA [Concomitant]
     Active Substance: ALBUTEROL SULFATE
     Indication: Dyspnoea
     Dosage: UNK, AS NEEDED (2 PUFFS EVERY 4 HOURS AS NEEDED)
     Route: 055
  7. PROAIR HFA [Concomitant]
     Active Substance: ALBUTEROL SULFATE
     Indication: Wheezing
  8. AMLODIPINE [Concomitant]
     Active Substance: AMLODIPINE BESYLATE
     Dosage: 10 MG, DAILY
     Route: 048
  9. ESTROGENS, CONJUGATED [Concomitant]
     Active Substance: ESTROGENS, CONJUGATED
     Dosage: UNK, 2X/WEEK (1 APPLICATION 2 TIMES A WEEK)
     Route: 067
  10. FLECAINIDE [Concomitant]
     Active Substance: FLECAINIDE
     Dosage: 100 MG, 2X/DAY
     Route: 048
  11. FLUTICASONE [Concomitant]
     Active Substance: FLUTICASONE
     Dosage: UNK, DAILY (2 SPRAYS DAILY)
     Route: 045
  12. SOMATULINE DEPOT [Concomitant]
     Active Substance: LANREOTIDE ACETATE
     Dosage: 120 MG, MONTHLY
     Route: 058
  13. METHOCARBAMOL [Concomitant]
     Active Substance: METHOCARBAMOL
     Indication: Muscle spasms
     Dosage: 1000 MG, 3X/DAY (AS NEEDED)
  14. METOPROLOL TARTRATE [Concomitant]
     Active Substance: METOPROLOL TARTRATE
     Dosage: 100 MG, 2X/DAY
     Route: 048
  15. MONTELUKAST [Concomitant]
     Active Substance: MONTELUKAST SODIUM
     Dosage: 10 MG, 1X/DAY (AT BEDTIME)
     Route: 048
  16. NICODERM CQ [Concomitant]
     Active Substance: NICOTINE
     Dosage: UNK UNK, DAILY (P!ACE 1 PATCH ON THE SKIN DAILY)
     Route: 062
  17. OMEPRAZOLE [Concomitant]
     Active Substance: OMEPRAZOLE
     Dosage: 40 MG, DAILY
     Route: 048
  18. PEGVISOMANT [Concomitant]
     Active Substance: PEGVISOMANT
     Dosage: 10 MG, DAILY
     Route: 058
  19. RIVAROXABAN [Concomitant]
     Active Substance: RIVAROXABAN
     Dosage: 20 MG, 1X/DAY (WITH DINNER)
     Route: 048
  20. SALINE [Concomitant]
     Active Substance: SODIUM CHLORIDE
     Dosage: UNK UNK, 2X/DAY
     Route: 045
  21. TRAMADOL [Concomitant]
     Active Substance: TRAMADOL
     Indication: Pain
     Dosage: 50 MG, AS NEEDED
     Route: 048

REACTIONS (12)
  - Drug ineffective [Unknown]
  - Drug dose omission by device [Unknown]
  - Device defective [Unknown]
  - Needle issue [Unknown]
  - Night sweats [Not Recovered/Not Resolved]
  - Glycosylated haemoglobin abnormal [Unknown]
  - Metabolic function test abnormal [Unknown]
  - Blood glucose increased [Unknown]
  - Blood creatinine increased [Unknown]
  - Aspartate aminotransferase decreased [Unknown]
  - Alanine aminotransferase decreased [Unknown]
  - Glomerular filtration rate decreased [Unknown]
